FAERS Safety Report 22356501 (Version 1)
Quarter: 2023Q2

REPORT INFORMATION
  Report Type: Spontaneous
  Country: ES (occurrence: ES)
  Receive Date: 20230523
  Receipt Date: 20230523
  Transmission Date: 20230722
  Serious: Yes (Hospitalization)
  Sender: FDA-Public Use
  Company Number: None

PATIENT
  Age: 88 Year
  Sex: Male

DRUGS (10)
  1. DOXAZOSIN [Suspect]
     Active Substance: DOXAZOSIN MESYLATE
     Indication: Hypertension
     Dosage: 8 MILLIGRAM, QD, 8.0 MG EVERY 24 HOURS
     Route: 048
     Dates: start: 20150420, end: 20221128
  2. OLMESARTAN MEDOXOMIL AND HYDROCHLOROTHIAZIDE [Suspect]
     Active Substance: HYDROCHLOROTHIAZIDE\OLMESARTAN MEDOXOMIL
     Indication: Hypertension
     Dosage: 160 MILLIGRAM ,BID 160. 0 MG BREAKFAST DINNER
     Route: 048
     Dates: start: 20221105, end: 20221128
  3. PARACETAMOL CINFA [Concomitant]
     Indication: Spinal osteoarthritis
     Dosage: 1 GRAM,1.0 G AFTER BREAKFAST-DINNER 40 TABLET
     Route: 048
     Dates: start: 20130618
  4. CALCIUM CARBONATE\CHOLECALCIFEROL [Concomitant]
     Active Substance: CALCIUM CARBONATE\CHOLECALCIFEROL
     Indication: Calcium metabolism disorder
     Dosage: UNK, QD,1. 0 TABLET BREAKFAST,30 TABLETS
     Route: 048
     Dates: start: 20220427
  5. GLYCOPYRRONIUM\INDACATEROL [Concomitant]
     Active Substance: GLYCOPYRRONIUM\INDACATEROL
     Indication: Bronchitis chronic
     Dosage: UNK, 1.0 CAPS C/24 H,85MCG/43MCG PACK 30 CAPSU
     Route: 065
     Dates: start: 20150303
  6. DIAZEPAM [Concomitant]
     Active Substance: DIAZEPAM
     Indication: Anxiety
     Dosage: 2.5 MILLIGRAM, BID, UNK, 2. 5 MG EVERY 12 HOURS
     Route: 048
     Dates: start: 20211221
  7. EDOXABAN TOSYLATE [Concomitant]
     Active Substance: EDOXABAN TOSYLATE
     Indication: Atrial fibrillation
     Dosage: 60 MILLIGRAM , QD 60. 0 MG BREAKFAST,28 TABLET
     Route: 048
     Dates: start: 20221111
  8. OMEPRAZOLE MAGNESIUM [Concomitant]
     Active Substance: OMEPRAZOLE MAGNESIUM
     Indication: Type 2 diabetes mellitus
     Dosage: 20 MILLIGRAM, 20. 0 MG BEFORE BREAKFAST56 CAPSULE
     Route: 048
     Dates: start: 20160429
  9. DUTASTERIDE\TAMSULOSIN [Concomitant]
     Active Substance: DUTASTERIDE\TAMSULOSIN
     Indication: Benign prostatic hyperplasia
     Dosage: UNK QD,1.0 CAPSULES DINNER, 0.5 MG/0.4 M,30 CAPSU
     Route: 048
     Dates: start: 20150701
  10. HERBALS\SAW PALMETTO [Concomitant]
     Active Substance: HERBALS\SAW PALMETTO
     Indication: Benign prostatic hyperplasia
     Dosage: 160 MILLIGRAM, QD,160. 0 MG BREAKFAST DINNER, 60
     Route: 048
     Dates: start: 20100723

REACTIONS (1)
  - Syncope [Recovered/Resolved]

NARRATIVE: CASE EVENT DATE: 20221124
